FAERS Safety Report 8271557-8 (Version None)
Quarter: 2012Q1

REPORT INFORMATION
  Report Type: 
  Country: None (occurrence: None)
  Receive Date: 20120327
  Receipt Date: 20091204
  Transmission Date: 20120608
  Serious: Yes (Other)
  Sender: FDA-Public Use
  Company Number: PHEH2009US17617

PATIENT
  Age: 3 Year
  Sex: Male

DRUGS (3)
  1. LEVOTHYROXINE SODIUM [Concomitant]
  2. GLEEVEC [Suspect]
     Indication: CHRONIC MYELOID LEUKAEMIA
     Dosage: 200 MG, QD, ORAL ; 100 MG, QD, ORAL
     Route: 048
     Dates: start: 20080424
  3. GLEEVEC [Suspect]
     Indication: CHRONIC MYELOID LEUKAEMIA
     Dosage: 200 MG, QD, ORAL ; 100 MG, QD, ORAL
     Route: 048
     Dates: start: 20080801

REACTIONS (1)
  - NEUTROPENIA [None]
